FAERS Safety Report 13396949 (Version 4)
Quarter: 2020Q2

REPORT INFORMATION
  Report Type: Spontaneous
  Country: US (occurrence: US)
  Receive Date: 20170403
  Receipt Date: 20200417
  Transmission Date: 20200713
  Serious: Yes (Hospitalization, Other)
  Sender: FDA-Public Use
  Company Number: US-ELI_LILLY_AND_COMPANY-US201703011125

PATIENT
  Age: 39 Year
  Sex: Female

DRUGS (6)
  1. HUMULIN N [Suspect]
     Active Substance: INSULIN HUMAN
     Indication: TYPE 2 DIABETES MELLITUS
     Dosage: UNK UNK, EACH EVENING, ON A SLIDING SCALE
     Route: 058
     Dates: start: 201611, end: 201702
  2. TRULICITY [Suspect]
     Active Substance: DULAGLUTIDE
     Indication: TYPE 2 DIABETES MELLITUS
     Dosage: 0.75 MG, WEEKLY (1/W)
     Route: 058
  3. HUMALOG [Suspect]
     Active Substance: INSULIN LISPRO
     Indication: TYPE 2 DIABETES MELLITUS
     Dosage: UNK UNK, EACH EVENING, ON A SLIDING SCALE
     Route: 058
     Dates: start: 2014, end: 201611
  4. VICTOZA [Concomitant]
     Active Substance: LIRAGLUTIDE
     Indication: PRODUCT USED FOR UNKNOWN INDICATION
     Dosage: UNK, UNKNOWN
     Route: 065
  5. HUMULIN R U-500 [Suspect]
     Active Substance: INSULIN HUMAN
     Indication: TYPE 2 DIABETES MELLITUS
     Dosage: 40 U, DAILY
     Route: 058
  6. METFORMIN [Concomitant]
     Active Substance: METFORMIN HYDROCHLORIDE
     Indication: PRODUCT USED FOR UNKNOWN INDICATION
     Dosage: UNK, UNKNOWN
     Route: 065

REACTIONS (23)
  - Ketoacidosis [Recovered/Resolved]
  - Presyncope [Recovered/Resolved]
  - Blood glucose abnormal [Recovering/Resolving]
  - Myalgia [Recovered/Resolved]
  - Inappropriate schedule of product administration [Not Recovered/Not Resolved]
  - Ketoacidosis [Recovered/Resolved]
  - Suicidal ideation [Recovered/Resolved]
  - Hypertension [Unknown]
  - Muscle spasms [Recovering/Resolving]
  - Ketoacidosis [Recovered/Resolved]
  - Ketoacidosis [Recovered/Resolved]
  - Dyspnoea [Recovered/Resolved]
  - Cerebrovascular accident [Not Recovered/Not Resolved]
  - Arthralgia [Recovered/Resolved]
  - Pain [Recovering/Resolving]
  - Back pain [Recovering/Resolving]
  - Product dose omission [Unknown]
  - Diabetes mellitus inadequate control [Not Recovered/Not Resolved]
  - Diarrhoea [Recovering/Resolving]
  - Hemiplegia [Not Recovered/Not Resolved]
  - Sleep disorder [Recovering/Resolving]
  - Swelling [Recovered/Resolved]
  - Abdominal discomfort [Recovering/Resolving]

NARRATIVE: CASE EVENT DATE: 201410
